FAERS Safety Report 5124776-3 (Version None)
Quarter: 2006Q4

REPORT INFORMATION
  Report Type: 
  Country: None (occurrence: None)
  Receive Date: 20061011
  Receipt Date: 20050830
  Transmission Date: 20070319
  Serious: Yes (Other)
  Sender: FDA-Public Use
  Company Number: PHBS2005DE12835

PATIENT
  Age: 18 Year
  Sex: Female

DRUGS (7)
  1. CYCLOSPORINE [Suspect]
     Indication: RENAL TRANSPLANT
     Dosage: MEAN DOSE OF 4.1A?0.6 MG/KG/D
     Route: 065
  2. CYCLOSPORINE [Suspect]
     Dosage: MEAN DOSE OF 3.4A?0.3 MG/KG/D
     Route: 065
  3. SIROLIMUS [Suspect]
     Indication: RENAL TRANSPLANT
     Dosage: MEAN DOSE OF 2.4A?0.5 MG/M2/D
     Route: 065
  4. MYCOPHENOLATE MOFETIL [Concomitant]
     Dosage: 600 MG/M2/DAY
  5. METHYLPREDNISOLONE [Concomitant]
     Dosage: 4 MG/M2/DAY
  6. ATGAM [Concomitant]
  7. AZATHIOPRINE [Concomitant]

REACTIONS (11)
  - BLOOD CREATININE INCREASED [None]
  - DISEASE RECURRENCE [None]
  - FOCAL GLOMERULOSCLEROSIS [None]
  - GLOMERULAR FILTRATION RATE DECREASED [None]
  - HYPOALBUMINAEMIA [None]
  - KIDNEY FIBROSIS [None]
  - KIDNEY TRANSPLANT REJECTION [None]
  - NEPHROPATHY TOXIC [None]
  - NEPHROTIC SYNDROME [None]
  - PROTEINURIA [None]
  - RENAL TUBULAR ATROPHY [None]
